FAERS Safety Report 7244290-9 (Version None)
Quarter: 2011Q1

REPORT INFORMATION
  Report Type: 
  Country: None (occurrence: None)
  Receive Date: 20110119
  Receipt Date: 20110119
  Transmission Date: 20110831
  Serious: Yes (Other)
  Sender: FDA-Public Use
  Company Number: None

PATIENT
  Sex: Male
  Weight: 137.8935 kg

DRUGS (1)
  1. ALCOHOL SWABS [Suspect]

REACTIONS (2)
  - PEPTOSTREPTOCOCCUS INFECTION [None]
  - ABDOMINAL ABSCESS [None]
